FAERS Safety Report 18587561 (Version 1)
Quarter: 2020Q4

REPORT INFORMATION
  Report Type: Spontaneous
  Country: US (occurrence: US)
  Receive Date: 20201207
  Receipt Date: 20201207
  Transmission Date: 20210114
  Serious: Yes (Other)
  Sender: FDA-Public Use
  Company Number: US-SEBELA IRELAND LIMITED-2020SEB00140

PATIENT
  Age: 33 Year
  Sex: Male

DRUGS (1)
  1. ITRACONAZOLE. [Suspect]
     Active Substance: ITRACONAZOLE
     Indication: DISSEMINATED BLASTOMYCOSIS
     Dosage: ^LIQUID^
     Route: 048

REACTIONS (4)
  - Cardiotoxicity [Unknown]
  - Pulmonary oedema [Unknown]
  - Pleural effusion [Unknown]
  - Dyspnoea [Unknown]
